FAERS Safety Report 9438137 (Version 1)
Quarter: 2013Q3

REPORT INFORMATION
  Report Type: Spontaneous
  Country: US (occurrence: US)
  Receive Date: 20130802
  Receipt Date: 20130802
  Transmission Date: 20140515
  Serious: Yes (Hospitalization)
  Sender: FDA-Public Use
  Company Number: US-BRISTOL-MYERS SQUIBB COMPANY-16914517

PATIENT
  Age: 52 Year
  Sex: Female

DRUGS (2)
  1. COUMADIN [Suspect]
  2. LETAIRIS [Suspect]
     Dosage: TABS
     Route: 048
     Dates: start: 20120710

REACTIONS (1)
  - Haemoptysis [Unknown]
